FAERS Safety Report 9501611 (Version 3)
Quarter: 2014Q1

REPORT INFORMATION
  Report Type: Spontaneous
  Country: US (occurrence: US)
  Receive Date: 20130905
  Receipt Date: 20140221
  Transmission Date: 20141002
  Serious: Yes (Hospitalization, Other)
  Sender: FDA-Public Use
  Company Number: US-009507513-1308USA014472

PATIENT
  Sex: Male

DRUGS (4)
  1. PROPECIA [Suspect]
     Indication: ANDROGENETIC ALOPECIA
     Dosage: 1 MG, UNK
     Route: 048
     Dates: start: 20050717, end: 200708
  2. FINASTERIDE [Suspect]
     Indication: ANDROGENETIC ALOPECIA
     Dosage: 1 MG, UNK
     Route: 048
     Dates: start: 20071018, end: 20071105
  3. FINASTERIDE [Suspect]
     Dosage: 5 MG, UNK
     Route: 048
     Dates: start: 20071018, end: 20071105
  4. WARFARIN [Concomitant]
     Indication: AORTIC VALVE REPLACEMENT
     Dosage: UNK
     Route: 048
     Dates: start: 198705

REACTIONS (12)
  - Cardiac pacemaker replacement [Unknown]
  - Erectile dysfunction [Unknown]
  - Sexual dysfunction [Unknown]
  - Loss of libido [Unknown]
  - Depression [Unknown]
  - Anxiety [Unknown]
  - Overdose [Unknown]
  - Cardiac pacemaker replacement [Unknown]
  - Heart valve operation [Unknown]
  - Heart valve replacement [Unknown]
  - Panic attack [Unknown]
  - Drug ineffective [Unknown]
